FAERS Safety Report 4726094-1 (Version None)
Quarter: 2005Q3

REPORT INFORMATION
  Report Type: 
  Country: None (occurrence: None)
  Receive Date: 20050727
  Receipt Date: 20050617
  Transmission Date: 20060218
  Serious: Yes (Hospitalization)
  Sender: FDA-Public Use
  Company Number: PHHO2005JP09828

PATIENT
  Age: 66 Year
  Sex: Male
  Weight: 54 kg

DRUGS (6)
  1. DIOVAN [Suspect]
     Indication: HYPERTENSION
     Dosage: 80 MG, QD
     Route: 048
     Dates: start: 20030327, end: 20041205
  2. STARSIS [Concomitant]
     Indication: DIABETES MELLITUS
     Dates: start: 20030430
  3. BASEN [Concomitant]
     Indication: DIABETES MELLITUS
     Dates: start: 19970113
  4. ALLOPURINOL [Concomitant]
     Indication: HYPERURICAEMIA
     Dates: start: 19990922
  5. LENDORMIN [Concomitant]
     Indication: INSOMNIA
     Dates: start: 20000531
  6. KREMEZIN [Concomitant]
     Indication: RENAL FAILURE
     Dates: start: 20041207

REACTIONS (2)
  - HYPERKALAEMIA [None]
  - RENAL FAILURE CHRONIC [None]
